FAERS Safety Report 16299809 (Version 5)
Quarter: 2022Q1

REPORT INFORMATION
  Report Type: Spontaneous
  Country: US (occurrence: None)
  Receive Date: 20190510
  Receipt Date: 20220302
  Transmission Date: 20220424
  Serious: Yes (Other)
  Sender: FDA-Public Use
  Company Number: 2019SE63821

PATIENT
  Age: 22752 Day
  Sex: Male
  Weight: 147.4 kg

DRUGS (72)
  1. NEXIUM [Suspect]
     Active Substance: ESOMEPRAZOLE MAGNESIUM
     Indication: Gastrooesophageal reflux disease
     Route: 048
  2. NEXIUM [Suspect]
     Active Substance: ESOMEPRAZOLE MAGNESIUM
     Indication: Gastrooesophageal reflux disease
     Route: 048
     Dates: start: 20060201
  3. NEXIUM [Suspect]
     Active Substance: ESOMEPRAZOLE MAGNESIUM
     Indication: Gastrooesophageal reflux disease
     Dosage: GENERIC
     Route: 065
     Dates: start: 20110916, end: 20140423
  4. PRILOSEC [Suspect]
     Active Substance: OMEPRAZOLE MAGNESIUM
     Indication: Gastrooesophageal reflux disease
     Route: 048
  5. PRILOSEC [Suspect]
     Active Substance: OMEPRAZOLE MAGNESIUM
     Indication: Gastrooesophageal reflux disease
     Route: 048
     Dates: start: 20140806, end: 20150324
  6. PRILOSEC [Suspect]
     Active Substance: OMEPRAZOLE MAGNESIUM
     Indication: Gastrooesophageal reflux disease
     Dosage: GENERIC
     Route: 065
     Dates: start: 20110916, end: 20110928
  7. PROTONIX [Suspect]
     Active Substance: PANTOPRAZOLE SODIUM
     Indication: Gastrooesophageal reflux disease
     Route: 065
     Dates: start: 20110925, end: 20190312
  8. PROTONIX [Suspect]
     Active Substance: PANTOPRAZOLE SODIUM
     Indication: Gastrooesophageal reflux disease
     Dosage: GENERIC
     Route: 065
     Dates: start: 20190314, end: 20190315
  9. LOTENSIN HCT [Concomitant]
     Active Substance: BENAZEPRIL HYDROCHLORIDE\HYDROCHLOROTHIAZIDE
     Indication: Diuretic therapy
     Route: 065
     Dates: start: 19990423, end: 20021130
  10. HUMULIN NOS [Concomitant]
     Active Substance: INSULIN HUMAN
     Indication: Diabetes mellitus
     Route: 065
     Dates: start: 19990322, end: 19990504
  11. TRIMOX [Concomitant]
     Active Substance: AMOXICILLIN
     Indication: Bacterial infection
     Route: 065
     Dates: start: 20001205
  12. PROMETH/COD [Concomitant]
     Indication: Hypersensitivity
     Route: 065
     Dates: start: 20001205
  13. ENDOCET [Concomitant]
     Active Substance: ACETAMINOPHEN\OXYCODONE HYDROCHLORIDE
     Indication: Pain
     Route: 065
     Dates: start: 20010228
  14. PROMETHAZINE [Concomitant]
     Active Substance: PROMETHAZINE HYDROCHLORIDE
     Indication: Hypersensitivity
     Route: 065
     Dates: start: 20010228
  15. QUAIFENEX PSE [Concomitant]
     Indication: Nasal congestion
     Route: 065
     Dates: start: 20020122
  16. CEPHALEXIN [Concomitant]
     Active Substance: CEPHALEXIN
     Indication: Pneumonia bacterial
     Route: 065
     Dates: start: 20020122
  17. RELION [Concomitant]
     Indication: Diabetes mellitus
     Route: 065
     Dates: start: 20020319, end: 20060731
  18. CYCLOBENZAPRINE [Concomitant]
     Active Substance: CYCLOBENZAPRINE
     Indication: Muscle relaxant therapy
     Route: 065
     Dates: start: 20020531, end: 20081011
  19. NORVASC [Concomitant]
     Active Substance: AMLODIPINE BESYLATE
     Indication: Hypertension
     Route: 065
     Dates: start: 20021217
  20. LISINOPRIL [Concomitant]
     Active Substance: LISINOPRIL
     Indication: Angiotensin converting enzyme inhibitor foetopathy
     Route: 065
     Dates: start: 20030313, end: 20060731
  21. DIAZEPAM [Concomitant]
     Active Substance: DIAZEPAM
     Indication: Anxiety
     Route: 065
     Dates: start: 20051106, end: 20090318
  22. PLAVIX [Concomitant]
     Active Substance: CLOPIDOGREL BISULFATE
     Indication: Blood cholesterol abnormal
     Route: 065
     Dates: start: 20051030, end: 20090618
  23. GUAIFENESIN\PHENYLEPHRINE\PHENYLPROPANOLAMINE [Concomitant]
     Active Substance: GUAIFENESIN\PHENYLEPHRINE\PHENYLPROPANOLAMINE
  24. LOTENSIN [Concomitant]
     Active Substance: BENAZEPRIL HYDROCHLORIDE
  25. ZITHROMAX [Concomitant]
     Active Substance: AZITHROMYCIN DIHYDRATE
  26. MINOXIDIL [Concomitant]
     Active Substance: MINOXIDIL
  27. IBUPROFEN [Concomitant]
     Active Substance: IBUPROFEN
  28. METOPROLOL [Concomitant]
     Active Substance: METOPROLOL
  29. GABAPENTIN [Concomitant]
     Active Substance: GABAPENTIN
  30. ASPIRIN [Concomitant]
     Active Substance: ASPIRIN
  31. DOXAZOSIN [Concomitant]
     Active Substance: DOXAZOSIN MESYLATE
  32. TORSEMIDE [Concomitant]
     Active Substance: TORSEMIDE
  33. SENNA [Concomitant]
     Active Substance: SENNA LEAF\SENNOSIDES\SENNOSIDES A AND B
  34. BRILINTA [Concomitant]
     Active Substance: TICAGRELOR
  35. ACETAMINOPHEN [Concomitant]
     Active Substance: ACETAMINOPHEN
  36. MAALOX ANTACID [Concomitant]
     Active Substance: ALUMINUM HYDROXIDE\DIMETHICONE\MAGNESIUM HYDROXIDE
  37. AMIODARONE [Concomitant]
     Active Substance: AMIODARONE
  38. DULCOLAX NOS [Concomitant]
     Active Substance: BISACODYL OR DOCUSATE SODIUM
  39. CALCIUM CHLORIDE [Concomitant]
     Active Substance: CALCIUM CHLORIDE
  40. ZINACEF [Concomitant]
     Active Substance: CEFUROXIME SODIUM
  41. PERIDEX [Concomitant]
     Active Substance: CHLORHEXIDINE GLUCONATE
  42. COLACE [Concomitant]
     Active Substance: DOCUSATE SODIUM
  43. DEXTROSE [Concomitant]
     Active Substance: DEXTROSE
  44. HEPARIN [Concomitant]
     Active Substance: HEPARIN SODIUM
  45. HETASTARCH [Concomitant]
     Active Substance: HETASTARCH
  46. HYDROCHLOROTHIAZIDE [Concomitant]
     Active Substance: HYDROCHLOROTHIAZIDE
  47. LACTULOSE [Concomitant]
     Active Substance: LACTULOSE
  48. XYLOCAINE [Concomitant]
     Active Substance: LIDOCAINE HYDROCHLORIDE
  49. MILK OF MAGNESIA [Concomitant]
     Active Substance: MAGNESIUM HYDROXIDE
  50. REGLAN [Concomitant]
     Active Substance: METOCLOPRAMIDE HYDROCHLORIDE
  51. NEOSYNEPHRINE [Concomitant]
     Active Substance: PHENYLEPHRINE HYDROCHLORIDE
  52. PERCOCET [Concomitant]
     Active Substance: ACETAMINOPHEN\OXYCODONE HYDROCHLORIDE
  53. PROPOFOL [Concomitant]
     Active Substance: PROPOFOL
  54. SODIUM CHLORIDE [Concomitant]
     Active Substance: SODIUM CHLORIDE
  55. HYTRIN [Concomitant]
     Active Substance: TERAZOSIN HYDROCHLORIDE
  56. VITAMINS [Concomitant]
     Active Substance: VITAMINS
  57. ETOMIDATE [Concomitant]
     Active Substance: ETOMIDATE
  58. PANCURONUM [Concomitant]
  59. FENTANYL [Concomitant]
     Active Substance: FENTANYL
  60. JANUVIA [Concomitant]
     Active Substance: SITAGLIPTIN PHOSPHATE
  61. METHYLPRENIDOLONE [Concomitant]
  62. AUGMENTIN [Concomitant]
     Active Substance: AMOXICILLIN\CLAVULANATE POTASSIUM
  63. HYDRALAZINE [Concomitant]
     Active Substance: HYDRALAZINE HYDROCHLORIDE
  64. SUCRALFATE [Concomitant]
     Active Substance: SUCRALFATE
  65. SOTALOL [Concomitant]
     Active Substance: SOTALOL
  66. COLCHICINE [Concomitant]
     Active Substance: COLCHICINE
  67. BUMETANIDE [Concomitant]
     Active Substance: BUMETANIDE
  68. FLUTICASONE [Concomitant]
     Active Substance: FLUTICASONE
  69. APIXABAN [Concomitant]
     Active Substance: APIXABAN
  70. ISOSORBIDE MONONITRATE [Concomitant]
     Active Substance: ISOSORBIDE MONONITRATE
  71. RANOIAZINE [Concomitant]
  72. TICAGRELOR [Concomitant]
     Active Substance: TICAGRELOR

REACTIONS (4)
  - Chronic kidney disease [Not Recovered/Not Resolved]
  - Acute kidney injury [Unknown]
  - Nephrogenic anaemia [Unknown]
  - Renal failure [Unknown]

NARRATIVE: CASE EVENT DATE: 20131104
